FAERS Safety Report 16931784 (Version 1)
Quarter: 2019Q4

REPORT INFORMATION
  Report Type: Spontaneous
  Country: MX (occurrence: MX)
  Receive Date: 20191017
  Receipt Date: 20191017
  Transmission Date: 20200122
  Serious: Yes (Hospitalization, Other)
  Sender: FDA-Public Use
  Company Number: MX-COSETTE PHARMACEUTICALS, INC.-GW2019MX000164

PATIENT

DRUGS (2)
  1. CLINDAMYCIN. [Concomitant]
     Active Substance: CLINDAMYCIN
     Indication: TOOTH ABSCESS
     Route: 065
  2. ACYCLOVIR. [Suspect]
     Active Substance: ACYCLOVIR
     Indication: TOOTH ABSCESS
     Dosage: 400 MG, UNK
     Route: 048

REACTIONS (1)
  - Renal tubular necrosis [Recovered/Resolved]
